FAERS Safety Report 15183199 (Version 2)
Quarter: 2018Q3

REPORT INFORMATION
  Report Type: Report from Study
  Country: NL (occurrence: NL)
  Receive Date: 20180723
  Receipt Date: 20180912
  Transmission Date: 20181010
  Serious: Yes (Death)
  Sender: FDA-Public Use
  Company Number: US-ASTRAZENECA-2018SE93686

PATIENT
  Age: 9 Month
  Sex: Female

DRUGS (1)
  1. SYNAGIS [Suspect]
     Active Substance: PALIVIZUMAB
     Indication: ANTIVIRAL PROPHYLAXIS
     Route: 030
     Dates: start: 20171024, end: 20171122

REACTIONS (1)
  - Death [Fatal]

NARRATIVE: CASE EVENT DATE: 20180618
